FAERS Safety Report 18910595 (Version 1)
Quarter: 2021Q1

REPORT INFORMATION
  Report Type: Spontaneous
  Country: DE (occurrence: DE)
  Receive Date: 20210218
  Receipt Date: 20210218
  Transmission Date: 20210420
  Serious: Yes (Hospitalization, Other)
  Sender: FDA-Public Use
  Company Number: DE-009507513-2102DEU003362

PATIENT
  Sex: Female
  Weight: 100 kg

DRUGS (14)
  1. AMITRIPTYLINE HYDROCHLORIDE. [Concomitant]
     Active Substance: AMITRIPTYLINE HYDROCHLORIDE
     Indication: PRODUCT USED FOR UNKNOWN INDICATION
     Dosage: 0.25 DF, QD
     Route: 065
     Dates: start: 201511
  2. MIRTAZAPINE. [Suspect]
     Active Substance: MIRTAZAPINE
     Indication: PRODUCT USED FOR UNKNOWN INDICATION
     Dosage: 15 MG, QD
     Route: 065
  3. RANITIDINE. [Suspect]
     Active Substance: RANITIDINE
     Indication: HIATUS HERNIA
     Dosage: 300 MG, UNKNOWN
     Route: 065
     Dates: start: 201510, end: 201703
  4. KATADOLON [Suspect]
     Active Substance: FLUPIRTINE
     Indication: PRODUCT USED FOR UNKNOWN INDICATION
     Dosage: UNK UNK, QD
     Route: 065
  5. RANITIDINE. [Suspect]
     Active Substance: RANITIDINE
     Indication: GASTROOESOPHAGEAL REFLUX DISEASE
     Dosage: 300 MG, UNKNOWN
     Route: 065
     Dates: start: 1999
  6. RANITIDINE HYDROCHLORIDE. [Suspect]
     Active Substance: RANITIDINE HYDROCHLORIDE
     Dosage: 1 DF, QD
     Route: 065
     Dates: start: 2015
  7. RANITIDINE. [Suspect]
     Active Substance: RANITIDINE
     Dosage: 300 MG, UNKNOWN
     Route: 065
     Dates: start: 201806, end: 202001
  8. DOXEPIN HYDROCHLORIDE. [Suspect]
     Active Substance: DOXEPIN HYDROCHLORIDE
     Indication: PRODUCT USED FOR UNKNOWN INDICATION
     Dosage: UNK
     Route: 065
  9. TILIDIN N [Suspect]
     Active Substance: NALOXONE HYDROCHLORIDE\TILIDINE HYDROCHLORIDE
     Indication: ARTHRALGIA
     Dosage: 1 DF, BID
     Route: 065
  10. RANITIDINE HYDROCHLORIDE. [Suspect]
     Active Substance: RANITIDINE HYDROCHLORIDE
     Indication: PRODUCT USED FOR UNKNOWN INDICATION
     Dosage: 0.5 DF, TID
     Route: 065
     Dates: start: 201511
  11. NOVALGIN (DIPYRONE) [Suspect]
     Active Substance: DIPYRONE
     Indication: PAIN
     Dosage: UNK
     Route: 065
     Dates: start: 200607
  12. DULOXETINE HYDROCHLORIDE. [Suspect]
     Active Substance: DULOXETINE HYDROCHLORIDE
     Indication: FIBROMYALGIA
     Dosage: 60 MG, QD
     Route: 065
     Dates: end: 201010
  13. RANITIDINE. [Suspect]
     Active Substance: RANITIDINE
     Indication: CHRONIC GASTRITIS
     Dosage: 300 MG, UNKNOWN
     Route: 065
     Dates: start: 201710, end: 201802
  14. DULOXETINE HYDROCHLORIDE. [Suspect]
     Active Substance: DULOXETINE HYDROCHLORIDE
     Indication: PAIN

REACTIONS (14)
  - Abdominal pain [Recovered/Resolved]
  - Tendon disorder [Unknown]
  - Abdominal pain upper [Recovered/Resolved]
  - Constipation [Unknown]
  - Meniscus injury [Unknown]
  - Cartilage injury [Unknown]
  - Patellofemoral pain syndrome [Unknown]
  - Crohn^s disease [Unknown]
  - Diverticulitis [Unknown]
  - Rotator cuff syndrome [Unknown]
  - Chondropathy [Unknown]
  - Arthralgia [Unknown]
  - Ligament sprain [Unknown]
  - Bursitis [Unknown]

NARRATIVE: CASE EVENT DATE: 20150508
